FAERS Safety Report 4580136-5 (Version None)
Quarter: 2005Q1

REPORT INFORMATION
  Report Type: 
  Country: None (occurrence: None)
  Receive Date: 20050210
  Receipt Date: 20050204
  Transmission Date: 20050727
  Serious: Yes (Life-Threatening)
  Sender: FDA-Public Use
  Company Number: 2005AP00981

PATIENT
  Age: 8 Year
  Sex: Male

DRUGS (6)
  1. PROPOFOL [Suspect]
     Indication: SENSORY DISTURBANCE
     Dosage: 70 MG DAILY IV
     Route: 042
     Dates: start: 20030822, end: 20030822
  2. MAXOLON [Suspect]
     Indication: NAUSEA
     Dosage: 5 MG DAILY IV
     Route: 042
     Dates: start: 20030822, end: 20030822
  3. MAXOLON [Suspect]
     Indication: VOMITING
     Dosage: 5 MG DAILY IV
     Route: 042
     Dates: start: 20030822, end: 20030822
  4. PETHIDINE HYDROCHLORIDE [Suspect]
     Indication: SENSORY DISTURBANCE
     Dosage: 35 MG DAILY
     Dates: start: 20030822, end: 20030822
  5. MIDAZOLAM [Concomitant]
  6. ACETAMINOPHEN [Concomitant]

REACTIONS (4)
  - APNOEA [None]
  - MUSCLE TWITCHING [None]
  - PULSE ABSENT [None]
  - RESTLESSNESS [None]
